FAERS Safety Report 20614777 (Version 1)
Quarter: 2022Q1

REPORT INFORMATION
  Report Type: Spontaneous
  Country: US (occurrence: US)
  Receive Date: 20220321
  Receipt Date: 20220321
  Transmission Date: 20220423
  Serious: Yes (Other)
  Sender: FDA-Public Use
  Company Number: US-CIPLA LTD.-2022US01711

PATIENT

DRUGS (2)
  1. METOPROLOL [Suspect]
     Active Substance: METOPROLOL
     Dosage: UNK
     Route: 064
  2. METOPROLOL [Suspect]
     Active Substance: METOPROLOL
     Dosage: UNK
     Route: 063

REACTIONS (4)
  - Haematochezia [Not Recovered/Not Resolved]
  - Exposure via breast milk [Unknown]
  - Eczema [Not Recovered/Not Resolved]
  - Foetal exposure during pregnancy [Unknown]
